FAERS Safety Report 5781596-4 (Version None)
Quarter: 2008Q2

REPORT INFORMATION
  Report Type: 
  Country: None (occurrence: None)
  Receive Date: 20080623
  Receipt Date: 20070615
  Transmission Date: 20081010
  Serious: No
  Sender: FDA-Public Use
  Company Number: US-ASTRAZENECA-2007UW14477

PATIENT
  Age: 61 Year
  Sex: Female
  Weight: 76.7 kg

DRUGS (1)
  1. RHINOCORT ACQUA [Suspect]
     Indication: SINUS DISORDER
     Dosage: 2 SPRAYS PER NOSTRIL
     Route: 045
     Dates: start: 20070612

REACTIONS (1)
  - MUSCULAR WEAKNESS [None]
